FAERS Safety Report 18691270 (Version 2)
Quarter: 2021Q1

REPORT INFORMATION
  Report Type: Spontaneous
  Country: US (occurrence: US)
  Receive Date: 20210101
  Receipt Date: 20210114
  Transmission Date: 20210419
  Serious: No
  Sender: FDA-Public Use
  Company Number: US-ASTRAZENECA-2020SF74781

PATIENT
  Age: 24660 Day
  Sex: Female

DRUGS (1)
  1. FASENRA [Suspect]
     Active Substance: BENRALIZUMAB
     Indication: ASTHMA
     Route: 058
     Dates: start: 201910

REACTIONS (4)
  - Feeling jittery [Unknown]
  - Headache [Recovered/Resolved]
  - Device use issue [Unknown]
  - Asthma [Unknown]

NARRATIVE: CASE EVENT DATE: 20191220
